FAERS Safety Report 9373254 (Version 2)
Quarter: 2013Q3

REPORT INFORMATION
  Report Type: Report from Study
  Country: US (occurrence: US)
  Receive Date: 20130627
  Receipt Date: 20130715
  Transmission Date: 20140515
  Serious: Yes (Other)
  Sender: FDA-Public Use
  Company Number: US-US-EMD SERONO, INC.-7219878

PATIENT
  Sex: Female

DRUGS (7)
  1. REBIF [Suspect]
     Indication: MULTIPLE SCLEROSIS
     Route: 058
     Dates: start: 2002, end: 2008
  2. REBIF [Suspect]
     Route: 058
     Dates: start: 20130515
  3. REBIF [Suspect]
     Route: 058
     Dates: start: 20130618
  4. BACLOFEN [Concomitant]
     Indication: MUSCLE SPASMS
  5. BACLOFEN [Concomitant]
     Indication: MUSCLE TWITCHING
  6. FLEXERIL                           /00428402/ [Concomitant]
     Indication: MUSCLE SPASMS
  7. FLEXERIL                           /00428402/ [Concomitant]
     Indication: MUSCLE TWITCHING

REACTIONS (7)
  - Type 1 diabetes mellitus [Not Recovered/Not Resolved]
  - Multiple sclerosis [Not Recovered/Not Resolved]
  - Injection site erythema [Not Recovered/Not Resolved]
  - Injection site inflammation [Recovering/Resolving]
  - Pyrexia [Not Recovered/Not Resolved]
  - Myalgia [Not Recovered/Not Resolved]
  - Chills [Not Recovered/Not Resolved]
